FAERS Safety Report 18334346 (Version 1)
Quarter: 2020Q4

REPORT INFORMATION
  Report Type: Spontaneous
  Country: US (occurrence: US)
  Receive Date: 20201001
  Receipt Date: 20201001
  Transmission Date: 20210113
  Serious: No
  Sender: FDA-Public Use
  Company Number: US-MYLANLABS-2020M1075810

PATIENT
  Sex: Female
  Weight: 86 kg

DRUGS (3)
  1. ESTRADIOL TRANSDERMAL SYSTEM [Suspect]
     Active Substance: ESTRADIOL
     Indication: MENOPAUSE
     Dosage: 0.0375 MILLIGRAM, QD
     Route: 062
     Dates: end: 202004
  2. LEVOTHYROXINE SODIUM. [Concomitant]
     Active Substance: LEVOTHYROXINE SODIUM
     Indication: HYPOTHYROIDISM
     Dosage: UNK
  3. ESTRADIOL TRANSDERMAL SYSTEM [Suspect]
     Active Substance: ESTRADIOL
     Indication: HOT FLUSH
     Dosage: 0.0375 MILLIGRAM, QD
     Route: 062
     Dates: start: 202006

REACTIONS (6)
  - Application site erosion [Unknown]
  - Wrong technique in product usage process [Unknown]
  - Application site pruritus [Unknown]
  - Application site erythema [Unknown]
  - Off label use [Unknown]
  - Application site irritation [Unknown]
